FAERS Safety Report 5628201-5 (Version None)
Quarter: 2008Q1

REPORT INFORMATION
  Report Type: 
  Country: None (occurrence: None)
  Receive Date: 20080131
  Receipt Date: 20071123
  Transmission Date: 20080703
  Serious: No
  Sender: FDA-Public Use
  Company Number: 163-21880-07111349

PATIENT
  Age: 81 Year
  Sex: Female

DRUGS (11)
  1. REVLIMID [Suspect]
     Indication: MYELODYSPLASTIC SYNDROME
     Dosage: 10 MG, 1 IN 1 D, ORAL
     Route: 048
     Dates: start: 20070702
  2. DETROL [Concomitant]
  3. FOSAMAX [Concomitant]
  4. HYDROXYCHLOROQUINE (HYDROCHLOROQUINE) [Concomitant]
  5. VITAMIN E [Concomitant]
  6. CALCIUM WITH VITAMIN D (CALCIUM WITH VITAMIN D) [Concomitant]
  7. MULTIVITAMIN [Concomitant]
  8. PREDNISONE TAB [Concomitant]
  9. ASPIRIN [Concomitant]
  10. PEPCID [Concomitant]
  11. METOCLOPRAMIDE [Concomitant]

REACTIONS (1)
  - OEDEMA PERIPHERAL [None]
